FAERS Safety Report 6749119-0 (Version None)
Quarter: 2010Q2

REPORT INFORMATION
  Report Type: 
  Country: None (occurrence: None)
  Receive Date: 20100601
  Receipt Date: 20100527
  Transmission Date: 20101027
  Serious: Yes (Other)
  Sender: FDA-Public Use
  Company Number: AU-BRISTOL-MYERS SQUIBB COMPANY-15124571

PATIENT
  Sex: Male

DRUGS (1)
  1. ENTECAVIR [Suspect]
     Indication: HEPATITIS B

REACTIONS (1)
  - LIVER TRANSPLANT [None]
